FAERS Safety Report 6045151-3 (Version None)
Quarter: 2009Q1

REPORT INFORMATION
  Report Type: 
  Country: None (occurrence: None)
  Receive Date: 20090116
  Receipt Date: 20090116
  Transmission Date: 20090719
  Serious: Yes (Death)
  Sender: FDA-Public Use
  Company Number: None

PATIENT
  Age: 18 Year
  Sex: Female
  Weight: 42.6381 kg

DRUGS (2)
  1. BACTRIM DS [Suspect]
     Indication: STAPHYLOCOCCAL INFECTION
     Dosage: 2 TABS 2X/DAY PO
     Route: 048
     Dates: start: 20070208, end: 20070215
  2. CUBICIN [Suspect]
     Dosage: 200 MG X1/DAY IV DRIP
     Route: 041
     Dates: start: 20070216, end: 20070216

REACTIONS (12)
  - ABNORMAL BEHAVIOUR [None]
  - BRAIN OEDEMA [None]
  - CARDIO-RESPIRATORY ARREST [None]
  - ELECTROENCEPHALOGRAM ABNORMAL [None]
  - FEELING ABNORMAL [None]
  - NAUSEA [None]
  - PAIN [None]
  - PYREXIA [None]
  - RASH GENERALISED [None]
  - SUPRAVENTRICULAR TACHYCARDIA [None]
  - VENTRICULAR TACHYCARDIA [None]
  - VOMITING [None]
